FAERS Safety Report 18144306 (Version 1)
Quarter: 2020Q3

REPORT INFORMATION
  Report Type: Spontaneous
  Country: US (occurrence: US)
  Receive Date: 20200812
  Receipt Date: 20200812
  Transmission Date: 20201103
  Serious: Yes (Death)
  Sender: FDA-Public Use
  Company Number: None

PATIENT
  Age: 71 Year
  Sex: Male
  Weight: 162.5 kg

DRUGS (18)
  1. ATRACURIUM IV [Concomitant]
     Dates: start: 20200805, end: 20200809
  2. CALCIUM GLUCONATE IVPB [Concomitant]
     Dates: start: 20200803, end: 20200809
  3. SODIUM POLYSTYRENE SULFONATE LIQ NG [Concomitant]
     Dates: start: 20200803, end: 20200803
  4. APRESOLINE IV [Concomitant]
     Dates: start: 20200802, end: 20200809
  5. CEFEPIME [Concomitant]
     Active Substance: CEFEPIME HYDROCHLORIDE
     Dates: start: 20200729, end: 20200804
  6. DECADRON [Concomitant]
     Active Substance: DEXAMETHASONE
     Dates: start: 20200728, end: 20200807
  7. LOVENOX SQ [Concomitant]
     Dates: start: 20200728, end: 20200803
  8. MULTIVITAMIN/MINERAL LIQ (CENTRUM) [Concomitant]
     Dates: start: 20200731, end: 20200809
  9. FUROSEMIDE IV [Concomitant]
     Dates: start: 20200802, end: 20200802
  10. HEPARIN [Concomitant]
     Active Substance: HEPARIN SODIUM
     Dates: start: 20200803, end: 20200809
  11. HYDROMORPHONE IV [Concomitant]
     Dates: start: 20200729, end: 20200809
  12. LEVOPHED IV [Concomitant]
     Dates: start: 20200806, end: 20200809
  13. SODIUM BICARBONATE IV [Concomitant]
     Dates: start: 20200803, end: 20200809
  14. MIDAZOLAM IV [Concomitant]
     Dates: start: 20200801, end: 20200805
  15. REMDESIVIR. [Suspect]
     Active Substance: REMDESIVIR
     Indication: COVID-19
     Dosage: ?          OTHER FREQUENCY:ONCE;?
     Route: 040
     Dates: start: 20200802, end: 20200802
  16. REMDESIVIR. [Suspect]
     Active Substance: REMDESIVIR
     Indication: COVID-19
     Route: 040
     Dates: start: 20200803, end: 20200804
  17. BISACODYL 10MG SUPPOSITORY [Concomitant]
     Dates: start: 20200803, end: 20200807
  18. PROTONIX [Concomitant]
     Active Substance: PANTOPRAZOLE SODIUM
     Dates: start: 20200803, end: 20200809

REACTIONS (9)
  - Multiple organ dysfunction syndrome [None]
  - Cardiac arrest [None]
  - General physical health deterioration [None]
  - Ischaemic hepatitis [None]
  - Atrial fibrillation [None]
  - Acute respiratory distress syndrome [None]
  - Renal failure [None]
  - Hypoxia [None]
  - Pulseless electrical activity [None]

NARRATIVE: CASE EVENT DATE: 20200809
